FAERS Safety Report 4727728-8 (Version None)
Quarter: 2005Q3

REPORT INFORMATION
  Report Type: 
  Country: None (occurrence: None)
  Receive Date: 20050727
  Receipt Date: 20050714
  Transmission Date: 20060218
  Serious: Yes (Hospitalization)
  Sender: FDA-Public Use
  Company Number: 2005096114

PATIENT
  Age: 50 Year
  Sex: Female

DRUGS (2)
  1. METHYLPREDNISOLONE [Suspect]
     Indication: POLYMYOSITIS
     Dosage: 12 MG (1D), ORAL
     Route: 048
  2. CYCLOSPORINE [Suspect]
     Indication: POLYMYOSITIS
     Dosage: 150 MG (1 D), ORAL
     Route: 048
     Dates: start: 20000101

REACTIONS (13)
  - ABDOMINAL DISTENSION [None]
  - ABDOMINAL REBOUND TENDERNESS [None]
  - ANTIBODY TEST POSITIVE [None]
  - ANTINUCLEAR ANTIBODY POSITIVE [None]
  - ARTHROPATHY [None]
  - BOWEL SOUNDS ABNORMAL [None]
  - DECREASED APPETITE [None]
  - FLATULENCE [None]
  - GASTROINTESTINAL MOTILITY DISORDER [None]
  - NAUSEA [None]
  - PNEUMATOSIS INTESTINALIS [None]
  - VOMITING [None]
  - X-RAY ABNORMAL [None]
